FAERS Safety Report 17752754 (Version 1)
Quarter: 2020Q2

REPORT INFORMATION
  Report Type: Spontaneous
  Country: US (occurrence: US)
  Receive Date: 20200506
  Receipt Date: 20200506
  Transmission Date: 20200714
  Serious: No
  Sender: FDA-Public Use
  Company Number: US-ROCHE-2454045

PATIENT
  Sex: Female

DRUGS (1)
  1. ESBRIET [Suspect]
     Active Substance: PIRFENIDONE
     Indication: IDIOPATHIC PULMONARY FIBROSIS
     Dosage: 1 TABLET 3 TIMES DAILY FOR 1 WEEK, THEN 2 TABLETS 3 TIMES DAILY FOR 1 WEEK AND 3 TABLETS 3 TIMES DAI
     Route: 048

REACTIONS (2)
  - Productive cough [Unknown]
  - Diarrhoea [Unknown]
